FAERS Safety Report 5864201-8 (Version None)
Quarter: 2008Q3

REPORT INFORMATION
  Report Type: 
  Country: None (occurrence: None)
  Receive Date: 20080829
  Receipt Date: 20080818
  Transmission Date: 20090109
  Serious: Yes (Hospitalization)
  Sender: FDA-Public Use
  Company Number: BR-ROCHE-582261

PATIENT
  Weight: 58 kg

DRUGS (3)
  1. BONIVA [Suspect]
     Indication: OSTEOPOROSIS
     Route: 048
     Dates: start: 20060501, end: 20061101
  2. PERSANTINE [Concomitant]
     Indication: BLOOD PRESSURE ABNORMAL
  3. ASPIRIN [Concomitant]
     Route: 048

REACTIONS (4)
  - FAECES DISCOLOURED [None]
  - GASTRIC DISORDER [None]
  - HAEMATEMESIS [None]
  - RESORPTION BONE INCREASED [None]
